FAERS Safety Report 24300101 (Version 1)
Quarter: 2024Q3

REPORT INFORMATION
  Report Type: Spontaneous
  Country: CA (occurrence: CA)
  Receive Date: 20240909
  Receipt Date: 20240909
  Transmission Date: 20241017
  Serious: Yes (Death, Life-Threatening, Hospitalization, Other)
  Sender: MERCK
  Company Number: CA-009507513-2409CAN002904

PATIENT
  Age: 64 Year
  Sex: Male

DRUGS (8)
  1. STROMECTOL [Suspect]
     Active Substance: IVERMECTIN
     Indication: Strongyloidiasis
     Dosage: 200 UG/KG, 1 EVERY 1 DAYS
     Route: 048
  2. ALBENDAZOLE [Suspect]
     Active Substance: ALBENDAZOLE
     Indication: Strongyloidiasis
     Dosage: 400 MILLIGRAM, 1 EVERY .5 DAYS
     Route: 048
  3. DEXAMETHASONE [Suspect]
     Active Substance: DEXAMETHASONE
     Indication: COVID-19 pneumonia
     Dosage: 6.0 MILLIGRAM, 1 EVERY 1 DAYS
     Route: 042
  4. HYDROXYCHLOROQUINE SULFATE [Suspect]
     Active Substance: HYDROXYCHLOROQUINE SULFATE
     Indication: Rheumatoid arthritis
     Dosage: 200 MILLIGRAM, 1 EVERY 1 DAYS
     Route: 048
  5. METHOTREXATE [Suspect]
     Active Substance: METHOTREXATE
     Indication: Rheumatoid arthritis
     Dosage: 10.0 MILLIGRAM, 1 EVERY 1 WEEKS
     Route: 058
  6. SULFASALAZINE [Suspect]
     Active Substance: SULFASALAZINE
     Indication: Rheumatoid arthritis
     Dosage: 500.0 MILLIGRAM, 1 EVERY .5 DAYS
     Route: 048
  7. AZITHROMYCIN [Concomitant]
     Active Substance: AZITHROMYCIN
     Indication: Evidence based treatment
     Route: 065
  8. CEFTRIAXONE SODIUM [Concomitant]
     Active Substance: CEFTRIAXONE SODIUM
     Indication: Evidence based treatment
     Route: 065

REACTIONS (10)
  - Acute kidney injury [Fatal]
  - Disseminated strongyloidiasis [Fatal]
  - Drug ineffective [Fatal]
  - Hypotension [Fatal]
  - Off label use [Fatal]
  - Pulmonary oedema [Fatal]
  - Respiratory distress [Fatal]
  - Respiratory failure [Fatal]
  - Sepsis [Fatal]
  - Strongyloidiasis [Fatal]
